FAERS Safety Report 5368257-0 (Version None)
Quarter: 2007Q2

REPORT INFORMATION
  Report Type: 
  Country: None (occurrence: None)
  Receive Date: 20070620
  Receipt Date: 20070604
  Transmission Date: 20071010
  Serious: Yes (Hospitalization, Other)
  Sender: FDA-Public Use
  Company Number: 157433USA

PATIENT
  Sex: 0

DRUGS (1)
  1. BACTRIM [Suspect]
     Dosage: INTRAVENOUS (NOT OTHERWISE SPECIFIED
     Route: 042

REACTIONS (1)
  - DIABETES INSIPIDUS [None]
